FAERS Safety Report 5881532-6 (Version None)
Quarter: 2008Q3

REPORT INFORMATION
  Report Type: 
  Country: None (occurrence: None)
  Receive Date: 20080911
  Receipt Date: 20080829
  Transmission Date: 20090109
  Serious: Yes (Other)
  Sender: FDA-Public Use
  Company Number: ALA_00176_2008

PATIENT
  Sex: Male

DRUGS (4)
  1. CORTIFOAM [Suspect]
     Indication: PROPHYLAXIS
     Dosage: 1 DF BID RECTAL, 1 DF QD RECTAL
     Route: 054
     Dates: end: 20080301
  2. CORTIFOAM [Suspect]
     Indication: PROPHYLAXIS
     Dosage: 1 DF BID RECTAL, 1 DF QD RECTAL
     Route: 054
     Dates: start: 20061201
  3. PENTASA [Concomitant]
  4. KY JELLY [Concomitant]

REACTIONS (3)
  - FOREIGN BODY TRAUMA [None]
  - INFLAMMATION [None]
  - PROCTALGIA [None]
